FAERS Safety Report 17721263 (Version 1)
Quarter: 2020Q2

REPORT INFORMATION
  Report Type: Spontaneous
  Country: US (occurrence: US)
  Receive Date: 20200429
  Receipt Date: 20200429
  Transmission Date: 20200714
  Serious: No
  Sender: FDA-Public Use
  Company Number: US-ROCHE-2383525

PATIENT

DRUGS (6)
  1. 5-FLUOROURACIL [FLUOROURACIL] [Concomitant]
     Active Substance: FLUOROURACIL
     Route: 065
  2. DECADRON [Concomitant]
     Active Substance: DEXAMETHASONE
  3. AVASTIN [Suspect]
     Active Substance: BEVACIZUMAB
     Indication: APPENDIX CANCER
     Route: 042
  4. ELOXATIN [Concomitant]
     Active Substance: OXALIPLATIN
     Route: 042
  5. LEUCOVORIN [FOLINIC ACID] [Concomitant]
     Active Substance: LEUCOVORIN
     Route: 065
  6. ZOFRAN [Concomitant]
     Active Substance: ONDANSETRON HYDROCHLORIDE

REACTIONS (3)
  - Product use in unapproved indication [Unknown]
  - No adverse event [Unknown]
  - Off label use [Unknown]
